FAERS Safety Report 14582444 (Version 2)
Quarter: 2018Q2

REPORT INFORMATION
  Report Type: Spontaneous
  Country: US (occurrence: US)
  Receive Date: 20180228
  Receipt Date: 20180413
  Transmission Date: 20180711
  Serious: Yes (Other)
  Sender: FDA-Public Use
  Company Number: US-VIFOR (INTERNATIONAL) INC.-VIT-2018-01891

PATIENT
  Sex: Male
  Weight: 106.5 kg

DRUGS (17)
  1. VELTASSA [Suspect]
     Active Substance: PATIROMER
     Indication: HYPERKALAEMIA
     Route: 048
     Dates: start: 20180109, end: 2018
  2. LEVEMIR [Concomitant]
     Active Substance: INSULIN DETEMIR
  3. IRON [Concomitant]
     Active Substance: IRON
  4. TERAZOSIN HYDROCHLORIDE. [Concomitant]
     Active Substance: TERAZOSIN HYDROCHLORIDE
  5. AMLODIPINE BESILATE [Concomitant]
     Active Substance: AMLODIPINE BESYLATE
  6. COLCRYS [Concomitant]
     Active Substance: COLCHICINE
  7. GLIMEPIRIDE. [Concomitant]
     Active Substance: GLIMEPIRIDE
  8. LOVASTATIN. [Concomitant]
     Active Substance: LOVASTATIN
  9. ALLOPURINOL. [Concomitant]
     Active Substance: ALLOPURINOL
  10. LISINOPRIL. [Concomitant]
     Active Substance: LISINOPRIL
  11. METFORMIN HYDROCHLORIDE. [Concomitant]
     Active Substance: METFORMIN HYDROCHLORIDE
  12. FOLIC ACID. [Concomitant]
     Active Substance: FOLIC ACID
  13. PARACETAMOL/HYDROCODONE BITARTRATE [Concomitant]
  14. FERROUS SULFATE. [Concomitant]
     Active Substance: FERROUS SULFATE
  15. METOPROLOL TARTRATE. [Concomitant]
     Active Substance: METOPROLOL TARTRATE
  16. NOVOLOG [Concomitant]
     Active Substance: INSULIN ASPART
  17. ASCORBIC ACID. [Concomitant]
     Active Substance: ASCORBIC ACID

REACTIONS (3)
  - Dyspnoea [Unknown]
  - Constipation [Recovered/Resolved]
  - Chest discomfort [Unknown]

NARRATIVE: CASE EVENT DATE: 2018
